FAERS Safety Report 4298446-8 (Version None)
Quarter: 2004Q1

REPORT INFORMATION
  Report Type: 
  Country: None (occurrence: None)
  Receive Date: 20040218
  Receipt Date: 20030730
  Transmission Date: 20041129
  Serious: Yes (Other)
  Sender: FDA-Public Use
  Company Number: US-BRISTOL-MYERS SQUIBB COMPANY-12342879

PATIENT
  Age: 17 Year
  Sex: Female

DRUGS (7)
  1. STADOL [Suspect]
     Indication: MIGRAINE
     Route: 045
     Dates: start: 19920101
  2. PROMETHAZINE [Concomitant]
  3. FIORINAL W/CODEINE [Concomitant]
  4. IMITREX [Concomitant]
  5. NUBAIN [Concomitant]
  6. VISTARIL [Concomitant]
  7. DECADRON [Concomitant]

REACTIONS (1)
  - DEPENDENCE [None]
